FAERS Safety Report 17916035 (Version 1)
Quarter: 2020Q2

REPORT INFORMATION
  Report Type: Spontaneous
  Country: US (occurrence: US)
  Receive Date: 20200619
  Receipt Date: 20200619
  Transmission Date: 20200714
  Serious: No
  Sender: FDA-Public Use
  Company Number: None

PATIENT
  Age: 28 Year
  Sex: Female
  Weight: 96.75 kg

DRUGS (1)
  1. ASPIRIN 325MG [Suspect]
     Active Substance: ASPIRIN

REACTIONS (2)
  - Therapeutic response unexpected [None]
  - Feeling of relaxation [None]

NARRATIVE: CASE EVENT DATE: 20200619
